FAERS Safety Report 19571570 (Version 2)
Quarter: 2021Q3

REPORT INFORMATION
  Report Type: Report from Study
  Country: CO (occurrence: CO)
  Receive Date: 20210716
  Receipt Date: 20210811
  Transmission Date: 20211014
  Serious: Yes (Other)
  Sender: FDA-Public Use
  Company Number: CO-TAKEDA-CO202007733

PATIENT
  Age: 45 Year
  Sex: Male
  Weight: 69 kg

DRUGS (2)
  1. VELAGLUCERASE ALFA [Suspect]
     Active Substance: VELAGLUCERASE ALFA
     Indication: GAUCHER^S DISEASE
     Dosage: 60 INTERNATIONAL UNIT/KILOGRAM
     Route: 042
     Dates: start: 20190527
  2. VELAGLUCERASE ALFA [Suspect]
     Active Substance: VELAGLUCERASE ALFA
     Dosage: 2400 INTERNATIONAL UNIT, Q2WEEKS
     Route: 042
     Dates: start: 20190527

REACTIONS (7)
  - Product selection error [Unknown]
  - Dyskinesia [Recovered/Resolved]
  - Tremor [Recovered/Resolved]
  - Off label use [Unknown]
  - COVID-19 [Recovering/Resolving]
  - Aphonia [Recovered/Resolved]
  - Weight decreased [Unknown]

NARRATIVE: CASE EVENT DATE: 201910
